FAERS Safety Report 21500674 (Version 1)
Quarter: 2022Q4

REPORT INFORMATION
  Report Type: Spontaneous
  Country: HU (occurrence: HU)
  Receive Date: 20221025
  Receipt Date: 20221025
  Transmission Date: 20230112
  Serious: Yes (Other)
  Sender: FDA-Public Use
  Company Number: HU-002147023-NVSC2022HU227909

PATIENT
  Age: 50 Year
  Sex: Male

DRUGS (9)
  1. ADALIMUMAB [Suspect]
     Active Substance: ADALIMUMAB
     Indication: Hidradenitis
     Dosage: UNK, QW
     Route: 065
     Dates: start: 2015
  2. ADALIMUMAB [Suspect]
     Active Substance: ADALIMUMAB
     Dosage: UNK
     Route: 065
     Dates: start: 20150728, end: 20200624
  3. ADALIMUMAB [Suspect]
     Active Substance: ADALIMUMAB
     Dosage: 40 MG, Q2W
     Route: 065
     Dates: start: 20140527
  4. CLINDAMYCIN [Suspect]
     Active Substance: CLINDAMYCIN
     Indication: Hidradenitis
     Dosage: UNK
     Route: 048
  5. SECUKINUMAB [Suspect]
     Active Substance: SECUKINUMAB
     Indication: Hidradenitis
     Dosage: 300 MG, QW
     Route: 065
     Dates: start: 20200902, end: 202010
  6. SECUKINUMAB [Suspect]
     Active Substance: SECUKINUMAB
     Dosage: 300 MG, QMO
     Route: 065
     Dates: start: 202010
  7. IRON [Concomitant]
     Active Substance: IRON
     Indication: Product used for unknown indication
     Dosage: UNK
     Route: 065
  8. PREDNISOLONE [Concomitant]
     Active Substance: PREDNISOLONE
     Indication: Product used for unknown indication
     Dosage: 0.5 MG/ BODY WEIGHT KG
     Route: 065
     Dates: start: 2015, end: 20150728
  9. ZINC [Concomitant]
     Active Substance: ZINC
     Indication: Product used for unknown indication
     Dosage: UNK
     Route: 065

REACTIONS (20)
  - Gamma-glutamyltransferase increased [Recovered/Resolved]
  - Immunoglobulins increased [Unknown]
  - Granuloma [Unknown]
  - Blood immunoglobulin G increased [Unknown]
  - Light chain analysis increased [Unknown]
  - Blood immunoglobulin A increased [Unknown]
  - Nodule [Recovering/Resolving]
  - Hypergammaglobulinaemia [Unknown]
  - Pustule [Recovering/Resolving]
  - Erythema elevatum diutinum [Recovering/Resolving]
  - Blood albumin decreased [Unknown]
  - Joint swelling [Unknown]
  - C-reactive protein increased [Unknown]
  - Haemoglobin decreased [Recovered/Resolved]
  - Hidradenitis [Recovering/Resolving]
  - Drug ineffective [Unknown]
  - Blood alkaline phosphatase increased [Recovered/Resolved]
  - Rash erythematous [Recovering/Resolving]
  - Vasculitis [Unknown]
  - Pyrexia [Unknown]

NARRATIVE: CASE EVENT DATE: 20150101
